FAERS Safety Report 23966791 (Version 6)
Quarter: 2024Q3

REPORT INFORMATION
  Report Type: Report from Study
  Country: MX (occurrence: MX)
  Receive Date: 20240612
  Receipt Date: 20240926
  Transmission Date: 20241016
  Serious: Yes (Life-Threatening, Hospitalization)
  Sender: NOVARTIS
  Company Number: MX-002147023-NVSC2023MX277169

PATIENT
  Age: 68 Year
  Sex: Female
  Weight: 62 kg

DRUGS (11)
  1. KISQALI [Suspect]
     Active Substance: RIBOCICLIB
     Indication: Breast cancer
     Dosage: 3 OF 200 MG (600 MG)
     Route: 048
     Dates: start: 202308
  2. KISQALI [Suspect]
     Active Substance: RIBOCICLIB
     Dosage: 3 DOSAGE FORM, QD (3 OF 200 MG)
     Route: 048
     Dates: start: 202309
  3. KISQALI [Suspect]
     Active Substance: RIBOCICLIB
     Dosage: 3 OF 200 MG (600 MG)
     Route: 048
     Dates: start: 20231201
  4. KISQALI [Suspect]
     Active Substance: RIBOCICLIB
     Dosage: 3 OF 200 MG (600 MG), FOR 21 DAYS AND RESTS 7
     Route: 048
     Dates: start: 202401
  5. KISQALI [Suspect]
     Active Substance: RIBOCICLIB
     Dosage: 3 DOSAGE FORM, QD (2 YEARS AGO)
     Route: 048
  6. LETROZOLE [Suspect]
     Active Substance: LETROZOLE
     Indication: Breast cancer
     Dosage: 1 DOSAGE FORM, QD
     Route: 065
  7. METFORMIN [Concomitant]
     Active Substance: METFORMIN HYDROCHLORIDE
     Indication: Diabetes mellitus
     Dosage: 1 DOSAGE FORM, QD
     Route: 065
  8. INSULIN NOS [Concomitant]
     Active Substance: INSULIN NOS
     Indication: Diabetes mellitus
     Dosage: 30 UI, QD
     Route: 058
  9. FUROSEMIDE [Concomitant]
     Active Substance: FUROSEMIDE
     Indication: Fluid retention
     Dosage: 1 DOSAGE FORM, QD
     Route: 048
  10. HYDROCHLOROTHIAZIDE [Concomitant]
     Active Substance: HYDROCHLOROTHIAZIDE
     Indication: Fluid retention
     Dosage: 1 DOSAGE FORM, QD
     Route: 048
  11. ANASTROZOLE [Concomitant]
     Active Substance: ANASTROZOLE
     Indication: Breast cancer
     Dosage: 2 DOSAGE FORM, QD
     Route: 048

REACTIONS (41)
  - Feeling abnormal [Unknown]
  - Pneumonia [Recovered/Resolved]
  - Body temperature increased [Recovered/Resolved]
  - Nasopharyngitis [Not Recovered/Not Resolved]
  - Cough [Recovering/Resolving]
  - Somnolence [Not Recovered/Not Resolved]
  - Increased appetite [Recovered/Resolved]
  - Nausea [Unknown]
  - Anxiety [Unknown]
  - Memory impairment [Not Recovered/Not Resolved]
  - Fatigue [Not Recovered/Not Resolved]
  - Gait inability [Unknown]
  - Movement disorder [Not Recovered/Not Resolved]
  - Muscular weakness [Not Recovered/Not Resolved]
  - Pain [Recovered/Resolved]
  - Thirst [Not Recovered/Not Resolved]
  - Decreased appetite [Not Recovered/Not Resolved]
  - Pain in extremity [Not Recovered/Not Resolved]
  - Catarrh [Recovered/Resolved]
  - Pterygium [Unknown]
  - Sensitive skin [Unknown]
  - Pain of skin [Unknown]
  - Respiratory tract congestion [Unknown]
  - Oropharyngeal discomfort [Not Recovered/Not Resolved]
  - Renal disorder [Unknown]
  - Weight decreased [Not Recovered/Not Resolved]
  - Anaemia [Recovering/Resolving]
  - Feeding disorder [Unknown]
  - Malaise [Not Recovered/Not Resolved]
  - Chest pain [Not Recovered/Not Resolved]
  - Product supply issue [Unknown]
  - Stress [Unknown]
  - Functional gastrointestinal disorder [Recovered/Resolved]
  - Constipation [Recovered/Resolved]
  - Dyschezia [Recovered/Resolved]
  - Depressed mood [Unknown]
  - Vertigo [Not Recovered/Not Resolved]
  - Visual impairment [Not Recovered/Not Resolved]
  - Fall [Not Recovered/Not Resolved]
  - Peripheral swelling [Recovered/Resolved]
  - Decreased immune responsiveness [Recovering/Resolving]

NARRATIVE: CASE EVENT DATE: 20230801
